FAERS Safety Report 7221877-0 (Version None)
Quarter: 2011Q1

REPORT INFORMATION
  Report Type: 
  Country: None (occurrence: None)
  Receive Date: 20110112
  Receipt Date: 20110104
  Transmission Date: 20110831
  Serious: Yes (Congenital Anomaly)
  Sender: FDA-Public Use
  Company Number: A0904832A

PATIENT
  Sex: Male
  Weight: 3.8 kg

DRUGS (4)
  1. COMBIVIR [Suspect]
     Indication: ANTIVIRAL TREATMENT
     Dates: start: 20091103, end: 20100318
  2. NORVIR [Suspect]
     Indication: ANTIVIRAL TREATMENT
     Dosage: 200MG PER DAY
     Dates: start: 20091103
  3. PREZISTA [Suspect]
     Indication: ANTIVIRAL TREATMENT
     Dosage: 1200MG PER DAY
     Dates: start: 20091103
  4. TRUVADA [Suspect]
     Indication: ANTIVIRAL TREATMENT
     Dosage: 10MG PER DAY
     Dates: start: 20100318

REACTIONS (3)
  - TRISOMY 21 [None]
  - PYELOCALIECTASIS [None]
  - DRUG EXPOSURE DURING PREGNANCY [None]
